FAERS Safety Report 21312222 (Version 1)
Quarter: 2022Q3

REPORT INFORMATION
  Report Type: Spontaneous
  Country: US (occurrence: None)
  Receive Date: 20220909
  Receipt Date: 20220909
  Transmission Date: 20221026
  Serious: No
  Sender: FDA-Public Use
  Company Number: US-ARIS GLOBAL-202204-0763

PATIENT
  Age: 76 Year
  Sex: Male

DRUGS (34)
  1. OXERVATE [Suspect]
     Active Substance: CENEGERMIN-BKBJ
     Indication: Neurotrophic keratopathy
     Route: 047
     Dates: start: 20220426
  2. AMITRIPTYLINE [Concomitant]
     Active Substance: AMITRIPTYLINE
     Dosage: AT BEDTIME
  3. AMLODIPINE [Concomitant]
     Active Substance: AMLODIPINE BESYLATE
  4. ATROPINE [Concomitant]
     Active Substance: ATROPINE
     Dosage: AT BEDTIME
  5. BIOFREEZE [Concomitant]
     Active Substance: MENTHOL
  6. COMBIGAN [Concomitant]
     Active Substance: BRIMONIDINE TARTRATE\TIMOLOL MALEATE
  7. DULCOLAX NOS [Concomitant]
     Active Substance: BISACODYL OR DOCUSATE SODIUM
  8. DUREZOL [Concomitant]
     Active Substance: DIFLUPREDNATE
  9. FINASTERIDE [Concomitant]
     Active Substance: FINASTERIDE
  10. GABAPENTIN [Concomitant]
     Active Substance: GABAPENTIN
  11. LIDOCAINE [Concomitant]
     Active Substance: LIDOCAINE
  12. LORATADINE [Concomitant]
     Active Substance: LORATADINE
  13. LOTEMAX [Concomitant]
     Active Substance: LOTEPREDNOL ETABONATE
  14. MAXITROL [Concomitant]
     Active Substance: DEXAMETHASONE\NEOMYCIN SULFATE\POLYMYXIN B SULFATE
  15. MELATONIN [Concomitant]
     Active Substance: MELATONIN
     Dosage: AT BEDTIME
  16. MILK OF MAGNESIA [Concomitant]
     Active Substance: MAGNESIUM HYDROXIDE
  17. NAPROXEN [Concomitant]
     Active Substance: NAPROXEN
  18. NYSTATIN [Concomitant]
     Active Substance: NYSTATIN
  19. OLANZAPINE [Concomitant]
     Active Substance: OLANZAPINE
     Dosage: AT BEDTIME
  20. OLANZAPINE [Concomitant]
     Active Substance: OLANZAPINE
     Dosage: EVERY MORNING
  21. OMEPRAZOLE [Concomitant]
     Active Substance: OMEPRAZOLE
  22. ONDANSETRON [Concomitant]
     Active Substance: ONDANSETRON
     Dosage: AS REQUIRED
  23. ONDANSETRON [Concomitant]
     Active Substance: ONDANSETRON
     Route: 030
  24. OXYCODONE [Concomitant]
     Active Substance: OXYCODONE
  25. Polyethyleneglycol [Concomitant]
  26. PROMETHAZINE [Concomitant]
     Active Substance: PROMETHAZINE HYDROCHLORIDE
     Dosage: AS NEEDED
  27. RAPAFLO [Concomitant]
     Active Substance: SILODOSIN
  28. REFRESH CLASSIC [Concomitant]
     Active Substance: POLYVINYL ALCOHOL\POVIDONE
     Dosage: AT BEDTIME
  29. REFRESH CLASSIC [Concomitant]
     Active Substance: POLYVINYL ALCOHOL\POVIDONE
  30. SALINE NASAL [Concomitant]
     Active Substance: SODIUM CHLORIDE
  31. Sennadocusate [Concomitant]
     Dosage: 8.6-50 MG
  32. TIZANIDINE [Concomitant]
     Active Substance: TIZANIDINE
  33. TRAVATAN Z [Concomitant]
     Active Substance: TRAVOPROST
     Dosage: A BEDTIME
  34. FLEET ENEMA [Concomitant]
     Active Substance: SODIUM PHOSPHATE, DIBASIC\SODIUM PHOSPHATE, MONOBASIC

REACTIONS (2)
  - Ocular hyperaemia [Not Recovered/Not Resolved]
  - Ocular discomfort [Not Recovered/Not Resolved]

NARRATIVE: CASE EVENT DATE: 20220427
